FAERS Safety Report 12316896 (Version 2)
Quarter: 2016Q2

REPORT INFORMATION
  Report Type: Spontaneous
  Country: US (occurrence: US)
  Receive Date: 20160429
  Receipt Date: 20160525
  Transmission Date: 20160815
  Serious: Yes (Hospitalization, Disabling, Other)
  Sender: FDA-Public Use
  Company Number: US-009507513-1604USA017081

PATIENT
  Age: 63 Year
  Sex: Female
  Weight: 67.57 kg

DRUGS (10)
  1. JANUVIA [Suspect]
     Active Substance: SITAGLIPTIN PHOSPHATE
     Indication: TYPE 2 DIABETES MELLITUS
     Dosage: 100 MG, QD
     Route: 048
     Dates: start: 20130401, end: 20150408
  2. ATORVASTATIN [Concomitant]
     Active Substance: ATORVASTATIN
  3. ASPIRIN. [Concomitant]
     Active Substance: ASPIRIN
  4. CALCIUM  (+) VITAMIN D [Concomitant]
     Active Substance: CALCIUM\VITAMIN D
  5. LISINOPRIL. [Concomitant]
     Active Substance: LISINOPRIL
  6. HAIR NAIL SKIN SUPPLEMENT BIOTIN [Concomitant]
  7. ESCITALOPRAM [Concomitant]
     Active Substance: ESCITALOPRAM OXALATE
  8. NOVOLOG [Concomitant]
     Active Substance: INSULIN ASPART
  9. LANTUS [Concomitant]
     Active Substance: INSULIN GLARGINE
  10. FISH OIL [Concomitant]
     Active Substance: FISH OIL

REACTIONS (5)
  - Pancreatitis [Not Recovered/Not Resolved]
  - Cardiac valve disease [Not Recovered/Not Resolved]
  - Thyroid disorder [Not Recovered/Not Resolved]
  - Injury [Not Recovered/Not Resolved]
  - Cardiac disorder [Not Recovered/Not Resolved]
